FAERS Safety Report 9689026 (Version 1)
Quarter: 2013Q4

REPORT INFORMATION
  Report Type: Spontaneous
  Country: BR (occurrence: BR)
  Receive Date: 20131114
  Receipt Date: 20131114
  Transmission Date: 20140711
  Serious: Yes (Other)
  Sender: FDA-Public Use
  Company Number: BR-PFIZER INC-2013323227

PATIENT
  Age: 82 Year
  Sex: Male

DRUGS (1)
  1. LIPITOR [Suspect]
     Indication: BLOOD CHOLESTEROL ABNORMAL
     Dosage: 80 MG (ONE TABLET), DAILY
     Route: 048
     Dates: start: 20090401

REACTIONS (2)
  - Micturition disorder [Not Recovered/Not Resolved]
  - Anxiety [Not Recovered/Not Resolved]
